FAERS Safety Report 17517716 (Version 1)
Quarter: 2020Q1

REPORT INFORMATION
  Report Type: Spontaneous
  Country: US (occurrence: US)
  Receive Date: 20200309
  Receipt Date: 20200309
  Transmission Date: 20200409
  Serious: Yes (Hospitalization)
  Sender: FDA-Public Use
  Company Number: None

PATIENT
  Sex: Female

DRUGS (5)
  1. XELJANZ [Suspect]
     Active Substance: TOFACITINIB CITRATE
     Indication: CROHN^S DISEASE
     Route: 048
     Dates: start: 20171215
  2. TOLTERODINE [Concomitant]
     Active Substance: TOLTERODINE
  3. CALCIUM [Concomitant]
     Active Substance: CALCIUM
  4. METHOTREXATE. [Concomitant]
     Active Substance: METHOTREXATE
  5. ADLT MULTIVI CHW [Concomitant]

REACTIONS (2)
  - Bacterial infection [None]
  - Therapy cessation [None]
